FAERS Safety Report 20955596 (Version 1)
Quarter: 2022Q2

REPORT INFORMATION
  Report Type: Spontaneous
  Country: US (occurrence: US)
  Receive Date: 20220614
  Receipt Date: 20220614
  Transmission Date: 20220721
  Serious: No
  Sender: FDA-Public Use
  Company Number: US-TEVA-2022-US-2044242

PATIENT
  Age: 70 Year
  Sex: Male

DRUGS (1)
  1. NORTRIPTYLINE HYDROCHLORIDE [Suspect]
     Active Substance: NORTRIPTYLINE HYDROCHLORIDE
     Dosage: 100 MILLIGRAM DAILY; TWO 50 MG CAPSULES EVERY NIGHT AT BEDTIME
     Route: 065

REACTIONS (3)
  - Constipation [Not Recovered/Not Resolved]
  - Dehydration [Unknown]
  - Dry mouth [Unknown]
